FAERS Safety Report 20459962 (Version 1)
Quarter: 2022Q1

REPORT INFORMATION
  Report Type: Report from Study
  Country: US (occurrence: None)
  Receive Date: 20220211
  Receipt Date: 20220211
  Transmission Date: 20220423
  Serious: Yes (Hospitalization)
  Sender: FDA-Public Use
  Company Number: US-ROCHE-3020691

PATIENT
  Age: 70 Year
  Sex: Female
  Weight: 68 kg

DRUGS (3)
  1. VENETOCLAX [Suspect]
     Active Substance: VENETOCLAX
     Indication: Follicular lymphoma
     Route: 048
     Dates: start: 20210804, end: 20220107
  2. RITUXIMAB [Suspect]
     Active Substance: RITUXIMAB
     Indication: Follicular lymphoma
     Route: 041
     Dates: start: 20210804, end: 20211228
  3. BENDAMUSTINE [Suspect]
     Active Substance: BENDAMUSTINE
     Indication: Follicular lymphoma
     Route: 048
     Dates: start: 20210804, end: 20211229

REACTIONS (1)
  - COVID-19 pneumonia [Not Recovered/Not Resolved]

NARRATIVE: CASE EVENT DATE: 20220203
